FAERS Safety Report 4821560-2 (Version None)
Quarter: 2005Q4

REPORT INFORMATION
  Report Type: 
  Country: None (occurrence: None)
  Receive Date: 20051103
  Receipt Date: 20051013
  Transmission Date: 20060501
  Serious: No
  Sender: FDA-Public Use
  Company Number: USA040362649

PATIENT
  Age: 17 Year
  Sex: Female
  Weight: 70 kg

DRUGS (6)
  1. ZYPREXA [Suspect]
     Indication: HALLUCINATION, AUDITORY
     Dosage: 7.5 MG AT BEDTIME
     Dates: start: 20040316
  2. TRAZODONE HCL [Concomitant]
  3. SEROQUEL [Concomitant]
  4. EFFEXOR [Concomitant]
  5. ZOLOFT [Concomitant]
  6. LAMICTAL [Concomitant]

REACTIONS (19)
  - AGITATION [None]
  - CONDITION AGGRAVATED [None]
  - DISTURBANCE IN ATTENTION [None]
  - DIZZINESS [None]
  - DRUG WITHDRAWAL SYNDROME [None]
  - FEELING ABNORMAL [None]
  - HALLUCINATION, AUDITORY [None]
  - HUNGER [None]
  - HYPOTENSION [None]
  - INSOMNIA [None]
  - LETHARGY [None]
  - MENSTRUATION IRREGULAR [None]
  - NASOPHARYNGITIS [None]
  - NAUSEA [None]
  - PANIC ATTACK [None]
  - PARAESTHESIA [None]
  - SOMNOLENCE [None]
  - VISION BLURRED [None]
  - WEIGHT INCREASED [None]
